FAERS Safety Report 20159499 (Version 4)
Quarter: 2022Q1

REPORT INFORMATION
  Report Type: Spontaneous
  Country: US (occurrence: US)
  Receive Date: 20211208
  Receipt Date: 20220212
  Transmission Date: 20220423
  Serious: Yes (Hospitalization, Other)
  Sender: FDA-Public Use
  Company Number: US-CELLTRION INC.-2021US016464

PATIENT

DRUGS (4)
  1. INFLECTRA [Suspect]
     Active Substance: INFLIXIMAB-DYYB
     Indication: Colitis ulcerative
     Dosage: 600 MG (FIRST INFLECTRA INFUSION WAS 2 WEEKS AFTER 25SEP2021)
     Route: 065
     Dates: start: 202110
  2. INFLECTRA [Suspect]
     Active Substance: INFLIXIMAB-DYYB
     Dosage: 600 MG (AT THE 2ND WAS 3 WEEKS AFTER THE FIRST INFLECTRA INFUSION)
     Route: 065
     Dates: start: 2021, end: 202112
  3. INFLECTRA [Suspect]
     Active Substance: INFLIXIMAB-DYYB
     Dosage: UNK
  4. INFLECTRA [Suspect]
     Active Substance: INFLIXIMAB-DYYB
     Dosage: 4TH INFLECTRA INFUSION IN THE BEGINNING OF DEC 2021
     Dates: start: 202112

REACTIONS (7)
  - Colitis ulcerative [Not Recovered/Not Resolved]
  - Drug ineffective [Unknown]
  - Therapeutic response shortened [Unknown]
  - Off label use [Unknown]
  - Off label use [Unknown]
  - Product substitution issue [Unknown]
  - Insurance issue [Unknown]

NARRATIVE: CASE EVENT DATE: 20210101
